FAERS Safety Report 4364159-7 (Version None)
Quarter: 2004Q2

REPORT INFORMATION
  Report Type: 
  Country: None (occurrence: None)
  Receive Date: 20040525
  Receipt Date: 20040514
  Transmission Date: 20050107
  Serious: Yes (Hospitalization)
  Sender: FDA-Public Use
  Company Number: US-BRISTOL-MYERS SQUIBB COMPANY-12586889

PATIENT
  Age: 55 Year
  Sex: Female

DRUGS (4)
  1. CARBOPLATIN [Suspect]
     Indication: OVARIAN CANCER
     Dates: start: 20040406, end: 20040406
  2. PACLITAXEL [Suspect]
     Indication: OVARIAN CANCER
     Dates: start: 20040406, end: 20040406
  3. LEVAQUIN [Concomitant]
     Indication: PROPHYLAXIS
  4. ARANESP [Concomitant]
     Indication: PROPHYLAXIS

REACTIONS (1)
  - COLITIS [None]
